FAERS Safety Report 6662033-4 (Version None)
Quarter: 2010Q1

REPORT INFORMATION
  Report Type: 
  Country: None (occurrence: None)
  Receive Date: 20100331
  Receipt Date: 20100118
  Transmission Date: 20100710
  Serious: No
  Sender: FDA-Public Use
  Company Number: US-BRISTOL-MYERS SQUIBB COMPANY-14937940

PATIENT
  Sex: Male

DRUGS (2)
  1. ERBITUX [Suspect]
     Indication: HEAD AND NECK CANCER
     Dosage: ERBITUX WITH RADIATION FOR 2 MONTHS.
  2. CARBOPLATIN [Suspect]
     Indication: HEAD AND NECK CANCER

REACTIONS (1)
  - ERYTHEMA [None]
